FAERS Safety Report 9781605 (Version 1)
Quarter: 2013Q4

REPORT INFORMATION
  Report Type: Spontaneous
  Country: US (occurrence: US)
  Receive Date: 20131224
  Receipt Date: 20131224
  Transmission Date: 20140711
  Serious: No
  Sender: FDA-Public Use
  Company Number: US-TEVA-445652USA

PATIENT
  Age: 73 Year
  Sex: Female
  Weight: 63.56 kg

DRUGS (9)
  1. AZILECT [Suspect]
     Indication: PARKINSONISM
     Dates: start: 201308
  2. EVISTA [Concomitant]
     Indication: HORMONE THERAPY
  3. TOPAMAX [Concomitant]
     Indication: MIGRAINE
  4. INDERAL [Concomitant]
     Indication: MIGRAINE
  5. DEPAKOTE [Concomitant]
     Indication: MIGRAINE
  6. VICODIN [Concomitant]
     Indication: MIGRAINE
  7. FIORICET [Concomitant]
     Indication: MIGRAINE
  8. GABAPENTIN [Concomitant]
     Indication: RESTLESS LEGS SYNDROME
  9. OMEPRAZOLE [Concomitant]
     Indication: GASTROOESOPHAGEAL REFLUX DISEASE

REACTIONS (2)
  - Diarrhoea [Not Recovered/Not Resolved]
  - Cystitis [Not Recovered/Not Resolved]
